FAERS Safety Report 16391698 (Version 1)
Quarter: 2019Q2

REPORT INFORMATION
  Report Type: Spontaneous
  Country: IT (occurrence: IT)
  Receive Date: 20190605
  Receipt Date: 20190605
  Transmission Date: 20190711
  Serious: Yes (Other)
  Sender: FDA-Public Use
  Company Number: IT-ACCORD-129703

PATIENT
  Age: 28 Year
  Sex: Male

DRUGS (4)
  1. DELTACORTENE [Suspect]
     Active Substance: PREDNISONE
     Indication: ANTIINFLAMMATORY THERAPY
     Route: 048
     Dates: end: 20190304
  2. JAKAVI [Suspect]
     Active Substance: RUXOLITINIB
     Indication: HYPERGLYCAEMIA
     Route: 048
     Dates: end: 20190304
  3. ALLOPURINOL. [Suspect]
     Active Substance: ALLOPURINOL
     Indication: GOUT
     Route: 048
     Dates: end: 20190304
  4. IMATINIB/IMATINIB MESILATE [Suspect]
     Active Substance: IMATINIB
     Indication: ACUTE MYELOID LEUKAEMIA
     Route: 048
     Dates: start: 20190107, end: 20190304

REACTIONS (4)
  - Hyperkeratosis [Recovered/Resolved]
  - Skin exfoliation [Recovered/Resolved]
  - Constipation [Recovered/Resolved]
  - Stomatitis [Recovered/Resolved]

NARRATIVE: CASE EVENT DATE: 20190301
